FAERS Safety Report 25663056 (Version 2)
Quarter: 2025Q3

REPORT INFORMATION
  Report Type: Spontaneous
  Country: US (occurrence: US)
  Receive Date: 20250811
  Receipt Date: 20250912
  Transmission Date: 20251021
  Serious: Yes (Hospitalization, Other)
  Sender: ABBVIE
  Company Number: US-ABBVIE-6400837

PATIENT
  Age: 82 Year
  Sex: Male
  Weight: 88.45 kg

DRUGS (14)
  1. BRIMONIDINE [Suspect]
     Active Substance: BRIMONIDINE TARTRATE
     Indication: Intraocular pressure test
     Route: 065
     Dates: start: 202204, end: 202504
  2. BRIMONIDINE [Suspect]
     Active Substance: BRIMONIDINE TARTRATE
     Indication: Glaucoma
  3. BRIMONIDINE [Suspect]
     Active Substance: BRIMONIDINE TARTRATE
     Indication: Age-related macular degeneration
  4. ROSUVASTATIN [Concomitant]
     Active Substance: ROSUVASTATIN
     Indication: Cardiac disorder
  5. DORZOLAMIDE [Suspect]
     Active Substance: DORZOLAMIDE
     Indication: Product used for unknown indication
     Route: 065
  6. LATANOPROST [Suspect]
     Active Substance: LATANOPROST
     Indication: Product used for unknown indication
     Route: 065
  7. COENZYME Q10 [Concomitant]
     Active Substance: DIETARY SUPPLEMENT\UBIDECARENONE
     Indication: Vitamin supplementation
  8. ASPIRIN [Concomitant]
     Active Substance: ASPIRIN
     Indication: Product used for unknown indication
  9. ELIQUIS [Concomitant]
     Active Substance: APIXABAN
     Indication: Thrombosis
  10. ROCKLATAN [Concomitant]
     Active Substance: LATANOPROST\NETARSUDIL MESYLATE
     Indication: Product used for unknown indication
  11. FINASTERIDE [Concomitant]
     Active Substance: FINASTERIDE
     Indication: Prostatic disorder
  12. LORATADINE [Concomitant]
     Active Substance: LORATADINE
     Indication: Seasonal allergy
  13. ALFUZOSIN [Concomitant]
     Active Substance: ALFUZOSIN
     Indication: Prostatic disorder
  14. OLMESARTAN [Concomitant]
     Active Substance: OLMESARTAN
     Indication: Blood pressure abnormal

REACTIONS (15)
  - Cerebrovascular accident [Unknown]
  - Ocular hyperaemia [Unknown]
  - Cataract [Unknown]
  - Thrombosis [Unknown]
  - COVID-19 [Unknown]
  - Eyelid ptosis [Unknown]
  - Brain fog [Unknown]
  - Vitreous floaters [Unknown]
  - Eye disorder [Unknown]
  - Intraocular pressure increased [Unknown]
  - Visual field defect [Unknown]
  - Dry eye [Unknown]
  - Vision blurred [Unknown]
  - Lacrimation increased [Unknown]
  - Nasopharyngitis [Unknown]

NARRATIVE: CASE EVENT DATE: 20250414
